FAERS Safety Report 9233666 (Version 1)
Quarter: 2013Q2

REPORT INFORMATION
  Report Type: Spontaneous
  Country: US (occurrence: US)
  Receive Date: 20130416
  Receipt Date: 20130416
  Transmission Date: 20140414
  Serious: No
  Sender: FDA-Public Use
  Company Number: US-BANPHARM-20130689

PATIENT
  Age: 58 Year
  Sex: Male
  Weight: 94.8 kg

DRUGS (4)
  1. ALEVE LIQUID GELS 220MG [Suspect]
     Indication: BACK PAIN
     Dosage: UNK, PRN, FOR 2-3 WEEKS,
     Route: 048
     Dates: end: 20120307
  2. METOPROLOL [Concomitant]
  3. AMLODIPINE [Concomitant]
  4. ALPRAZOLAM [Concomitant]

REACTIONS (6)
  - Hypoaesthesia [Recovering/Resolving]
  - Paraesthesia [Recovering/Resolving]
  - Muscle tightness [Recovering/Resolving]
  - Swelling face [Recovering/Resolving]
  - Swelling [Recovering/Resolving]
  - Documented hypersensitivity to administered drug [Unknown]
